FAERS Safety Report 7023481-6 (Version None)
Quarter: 2010Q3

REPORT INFORMATION
  Report Type: 
  Country: None (occurrence: None)
  Receive Date: 20100929
  Receipt Date: 20100915
  Transmission Date: 20110219
  Serious: Yes (Death, Hospitalization)
  Sender: FDA-Public Use
  Company Number: DKLU1065040

PATIENT
  Age: 7 Month
  Sex: Male

DRUGS (8)
  1. SABRIL [Suspect]
     Indication: INFANTILE SPASMS
     Dosage: 500 MG MILLIGRAM(S), 2 IN 1 D, G TUBE
     Dates: start: 20100629
  2. TOPAMAX [Concomitant]
  3. KEPPRA [Concomitant]
  4. DIAZEPAM [Concomitant]
  5. SIMETHICONE (DIMETHICONE, ACTIVATED) [Concomitant]
  6. CALMOSEPTINE (CALAMINE/01864001/) OINTMENT [Concomitant]
  7. ESOMEPRAZOLE (ESOMEPRAZOLE) [Concomitant]
  8. PEPCID (PEPCIDDUAL) [Concomitant]

REACTIONS (1)
  - SEPSIS [None]
